FAERS Safety Report 19944458 (Version 1)
Quarter: 2021Q4

REPORT INFORMATION
  Report Type: Spontaneous
  Country: US (occurrence: US)
  Receive Date: 20211012
  Receipt Date: 20211012
  Transmission Date: 20220303
  Serious: No
  Sender: FDA-Public Use
  Company Number: US-MYOVANT SCIENCES GMBH-2021MYSCI0700406

PATIENT
  Sex: Male

DRUGS (1)
  1. ORGOVYX [Suspect]
     Active Substance: RELUGOLIX
     Indication: Product used for unknown indication
     Dosage: 240 MILLIGRAM, QD
     Route: 048
     Dates: start: 20210216

REACTIONS (3)
  - Micturition disorder [Unknown]
  - Hot flush [Unknown]
  - Incorrect dose administered [Not Recovered/Not Resolved]
